FAERS Safety Report 25932769 (Version 1)
Quarter: 2025Q4

REPORT INFORMATION
  Report Type: Spontaneous
  Country: US (occurrence: US)
  Receive Date: 20251017
  Receipt Date: 20251017
  Transmission Date: 20260118
  Serious: No
  Sender: Kenvue
  Company Number: US-KENVUE-20250914481

PATIENT

DRUGS (1)
  1. TYLENOL [Suspect]
     Active Substance: ACETAMINOPHEN
     Indication: Autism spectrum disorder
     Dosage: UNK
     Route: 065

REACTIONS (2)
  - Attention deficit hyperactivity disorder [Unknown]
  - Product use in unapproved indication [Unknown]
